FAERS Safety Report 7371396-6 (Version None)
Quarter: 2011Q1

REPORT INFORMATION
  Report Type: 
  Country: None (occurrence: None)
  Receive Date: 20110324
  Receipt Date: 20110310
  Transmission Date: 20110831
  Serious: Yes (Other)
  Sender: FDA-Public Use
  Company Number: BE-JNJFOC-20110305673

PATIENT
  Age: 16 Year
  Sex: Female

DRUGS (4)
  1. SOLU-CORTEF [Concomitant]
     Indication: PREMEDICATION
  2. REMICADE [Suspect]
     Indication: PRODUCT USED FOR UNKNOWN INDICATION
     Route: 042
  3. REMICADE [Suspect]
     Dosage: 5-6 INJECTIONS
     Route: 042
  4. REMICADE [Suspect]
     Route: 042

REACTIONS (8)
  - OXYGEN SATURATION DECREASED [None]
  - NAUSEA [None]
  - VOMITING [None]
  - ANAPHYLACTOID REACTION [None]
  - INFUSION RELATED REACTION [None]
  - ERYTHEMA [None]
  - DYSPNOEA [None]
  - FLUSHING [None]
